FAERS Safety Report 12245423 (Version 2)
Quarter: 2016Q2

REPORT INFORMATION
  Report Type: Spontaneous
  Country: ES (occurrence: ES)
  Receive Date: 20160407
  Receipt Date: 20160509
  Transmission Date: 20160815
  Serious: Yes (Other)
  Sender: FDA-Public Use
  Company Number: ES-ROCHE-1738402

PATIENT
  Age: 20 Year
  Sex: Female
  Weight: 56 kg

DRUGS (3)
  1. TOCILIZUMAB [Suspect]
     Active Substance: TOCILIZUMAB
     Indication: JUVENILE IDIOPATHIC ARTHRITIS
     Route: 058
     Dates: start: 20160112
  2. DEFLAZACORT [Concomitant]
     Active Substance: DEFLAZACORT
     Route: 048
     Dates: start: 20151126
  3. METHOTREXATE [Concomitant]
     Active Substance: METHOTREXATE
     Indication: JUVENILE IDIOPATHIC ARTHRITIS
     Route: 058
     Dates: start: 20141201

REACTIONS (1)
  - Complement factor decreased [Not Recovered/Not Resolved]

NARRATIVE: CASE EVENT DATE: 20160119
